APPROVED DRUG PRODUCT: CARBOPLATIN
Active Ingredient: CARBOPLATIN
Strength: 450MG/45ML (10MG/ML)
Dosage Form/Route: INJECTABLE;INTRAVENOUS
Application: A206775 | Product #003 | TE Code: AP
Applicant: ACCORD HEALTHCARE INC
Approved: Feb 9, 2017 | RLD: No | RS: No | Type: RX